FAERS Safety Report 11079250 (Version 3)
Quarter: 2015Q2

REPORT INFORMATION
  Report Type: Spontaneous
  Country: IE (occurrence: IE)
  Receive Date: 20150430
  Receipt Date: 20150608
  Transmission Date: 20150821
  Serious: Yes (Hospitalization, Other)
  Sender: FDA-Public Use
  Company Number: PHFR2015IE003424

PATIENT
  Age: 26 Year
  Sex: Male

DRUGS (3)
  1. CLOZARIL [Suspect]
     Active Substance: CLOZAPINE
     Indication: SCHIZOPHRENIA
     Dosage: UNK MG, UNK
     Route: 048
     Dates: start: 20150113, end: 20150501
  2. CLOZARIL [Suspect]
     Active Substance: CLOZAPINE
     Dosage: 175 MG, QD
     Route: 048
  3. ASPIRIN. [Concomitant]
     Active Substance: ASPIRIN
     Indication: MYOCARDITIS
     Dosage: 75 MG, QD
     Route: 048

REACTIONS (4)
  - Malabsorption [Recovered/Resolved]
  - Appendicitis [Recovered/Resolved]
  - Obstruction [Recovering/Resolving]
  - Ileus [Recovered/Resolved]

NARRATIVE: CASE EVENT DATE: 20150426
